FAERS Safety Report 7732430-4 (Version None)
Quarter: 2011Q3

REPORT INFORMATION
  Report Type: 
  Country: None (occurrence: None)
  Receive Date: 20110906
  Receipt Date: 20110830
  Transmission Date: 20111222
  Serious: Yes (Hospitalization, Disabling, Other)
  Sender: FDA-Public Use
  Company Number: US-PFIZER INC-2011178510

PATIENT
  Sex: Female
  Weight: 68 kg

DRUGS (7)
  1. PREMARIN [Suspect]
     Indication: HYSTERECTOMY
     Dosage: 1.25 MG, 1X/DAY
     Route: 048
     Dates: start: 19820101, end: 20110101
  2. PRILOSEC [Concomitant]
     Indication: GASTROOESOPHAGEAL REFLUX DISEASE
  3. PRAVASTATIN [Concomitant]
     Indication: BLOOD CHOLESTEROL INCREASED
     Dosage: 80 MG, DAILY
  4. LESCOL [Concomitant]
     Indication: BLOOD CHOLESTEROL INCREASED
  5. VITAMIN TAB [Concomitant]
  6. PREMARIN [Suspect]
     Indication: MENOPAUSAL SYMPTOMS
     Dosage: UNK
     Dates: start: 19820101, end: 20110101
  7. COUMADIN [Concomitant]
     Indication: BLOOD PRESSURE ABNORMAL
     Dosage: 5 MG, UNK
     Route: 048

REACTIONS (7)
  - AORTIC THROMBOSIS [None]
  - BLINDNESS UNILATERAL [None]
  - CEREBRAL ARTERY OCCLUSION [None]
  - CEREBRAL THROMBOSIS [None]
  - CEREBROVASCULAR ACCIDENT [None]
  - WALKING DISABILITY [None]
  - HEMIPARESIS [None]
